FAERS Safety Report 24913427 (Version 1)
Quarter: 2025Q1

REPORT INFORMATION
  Report Type: Spontaneous
  Country: US (occurrence: US)
  Receive Date: 20250201
  Receipt Date: 20250201
  Transmission Date: 20250409
  Serious: Yes (Other)
  Sender: ACCORD
  Company Number: US-MLMSERVICE-20250117-PI361304-00200-1

PATIENT
  Age: 35 Year
  Sex: Female

DRUGS (4)
  1. LEVOTHYROXINE [Suspect]
     Active Substance: LEVOTHYROXINE
     Indication: Graves^ disease
  2. INSULIN NOS [Concomitant]
     Active Substance: INSULIN NOS
     Indication: Type 1 diabetes mellitus
  3. METHYLPREDNISOLONE [Concomitant]
     Active Substance: METHYLPREDNISOLONE
  4. NORTRIPTYLINE [Concomitant]
     Active Substance: NORTRIPTYLINE
     Indication: Migraine prophylaxis

REACTIONS (3)
  - Adrenocortical insufficiency acute [Recovering/Resolving]
  - Primary adrenal insufficiency [Recovering/Resolving]
  - Off label use [Unknown]
